FAERS Safety Report 17174380 (Version 1)
Quarter: 2019Q4

REPORT INFORMATION
  Report Type: Report from Study
  Country: CA (occurrence: CA)
  Receive Date: 20191219
  Receipt Date: 20191219
  Transmission Date: 20200122
  Serious: Yes (Hospitalization)
  Sender: FDA-Public Use
  Company Number: CA-JNJFOC-20191215043

PATIENT
  Age: 71 Year
  Sex: Male

DRUGS (1)
  1. SIMPONI [Suspect]
     Active Substance: GOLIMUMAB
     Indication: ANKYLOSING SPONDYLITIS
     Route: 058

REACTIONS (6)
  - Cervical vertebral fracture [Unknown]
  - Cerebrovascular accident [Unknown]
  - Off label use [Unknown]
  - Fall [Unknown]
  - Product use issue [Unknown]
  - Haematoma [Unknown]

NARRATIVE: CASE EVENT DATE: 20191118
